FAERS Safety Report 10211335 (Version 1)
Quarter: 2014Q2

REPORT INFORMATION
  Report Type: Spontaneous
  Country: GB (occurrence: None)
  Receive Date: 20140528
  Receipt Date: 20140528
  Transmission Date: 20141212
  Serious: Yes (Other)
  Sender: FDA-Public Use
  Company Number: AUR-APL-2014-06077

PATIENT
  Age: 80 Year
  Sex: Female
  Weight: 74 kg

DRUGS (8)
  1. RAMIPRIL [Suspect]
     Indication: PRODUCT USED FOR UNKNOWN INDICATION
     Dates: start: 20140408
  2. BECONASE [Concomitant]
  3. CANDESARTAN [Concomitant]
  4. FEXOFENADINE (FEXOFENADINE) (FEXOFENADINE) [Concomitant]
  5. QVAR [Concomitant]
  6. VENTOLIN (SALBUTAMOL) [Concomitant]
  7. VIAZEM XL [Concomitant]
  8. COLECALCIFEROL [Concomitant]

REACTIONS (2)
  - Urticaria [None]
  - Condition aggravated [None]
